FAERS Safety Report 10724891 (Version 1)
Quarter: 2015Q1

REPORT INFORMATION
  Report Type: Report from Study
  Country: BR (occurrence: BR)
  Receive Date: 20150120
  Receipt Date: 20150120
  Transmission Date: 20150721
  Serious: Yes (Other)
  Sender: FDA-Public Use
  Company Number: BR-EMD SERONO-7238577

PATIENT
  Age: 52 Year
  Sex: Female

DRUGS (1)
  1. REBIF [Suspect]
     Active Substance: INTERFERON BETA-1A
     Indication: RELAPSING-REMITTING MULTIPLE SCLEROSIS
     Dosage: TITRATING DOSE: 0.25MCG
     Route: 058
     Dates: start: 20130805

REACTIONS (15)
  - Implant site inflammation [Not Recovered/Not Resolved]
  - Bone loss [Not Recovered/Not Resolved]
  - Tremor [Recovering/Resolving]
  - Apathy [Not Recovered/Not Resolved]
  - Facial pain [Recovered/Resolved]
  - Chills [Recovering/Resolving]
  - Implant site cyst [Not Recovered/Not Resolved]
  - Injection site pain [Recovered/Resolved]
  - Injection site erythema [Not Recovered/Not Resolved]
  - Injection site bruising [Not Recovered/Not Resolved]
  - Pain [Recovering/Resolving]
  - Malaise [Recovering/Resolving]
  - Breath sounds abnormal [Unknown]
  - Injection site haemorrhage [Unknown]
  - Fatigue [Recovering/Resolving]

NARRATIVE: CASE EVENT DATE: 201309
